FAERS Safety Report 16019932 (Version 2)
Quarter: 2019Q2

REPORT INFORMATION
  Report Type: Spontaneous
  Country: US (occurrence: US)
  Receive Date: 20190228
  Receipt Date: 20190521
  Transmission Date: 20190711
  Serious: Yes (Hospitalization)
  Sender: FDA-Public Use
  Company Number: PHEH2019US008537

PATIENT
  Age: 60 Year
  Sex: Male

DRUGS (1)
  1. VOTRIENT [Suspect]
     Active Substance: PAZOPANIB HYDROCHLORIDE
     Indication: RENAL CANCER
     Dosage: 400 MG, QD
     Route: 048
     Dates: start: 20181120

REACTIONS (5)
  - Hypothyroidism [Unknown]
  - Fatigue [Unknown]
  - Nephrolithiasis [Recovered/Resolved]
  - Diarrhoea [Unknown]
  - Blood urine present [Unknown]

NARRATIVE: CASE EVENT DATE: 20181225
